FAERS Safety Report 10374873 (Version 4)
Quarter: 2014Q4

REPORT INFORMATION
  Report Type: Spontaneous
  Country: HU (occurrence: HU)
  Receive Date: 20140811
  Receipt Date: 20141029
  Transmission Date: 20150528
  Serious: Yes (Hospitalization, Other)
  Sender: FDA-Public Use
  Company Number: HU-TEVA-500558ISR

PATIENT
  Age: 53 Year
  Sex: Female

DRUGS (4)
  1. CIPROFLOXACIN. [Suspect]
     Active Substance: CIPROFLOXACIN
     Indication: ARTHRITIS BACTERIAL
     Dosage: 800 MILLIGRAM DAILY;
     Route: 042
  2. RIFAMPICIN [Suspect]
     Active Substance: RIFAMPIN
     Indication: ARTHRITIS BACTERIAL
     Dosage: 600 MILLIGRAM DAILY;
     Route: 042
  3. TEICOPLANIN [Suspect]
     Active Substance: TEICOPLANIN
     Indication: ARTHRITIS BACTERIAL
     Route: 065
  4. COLOMYCIN [Suspect]
     Active Substance: COLISTIN
     Indication: ARTHRITIS BACTERIAL
     Route: 065

REACTIONS (15)
  - Hypotension [Recovered/Resolved]
  - Acute hepatic failure [Recovered/Resolved]
  - Acinetobacter infection [Recovered/Resolved]
  - Diarrhoea [Recovered/Resolved]
  - Blood bilirubin increased [Recovered/Resolved]
  - Clostridium difficile colitis [Recovered/Resolved]
  - Staphylococcal infection [Recovered/Resolved]
  - Dyspnoea [Recovered/Resolved]
  - Thrombocytopenia [Recovered/Resolved]
  - Lower gastrointestinal haemorrhage [Recovered/Resolved]
  - Urinary tract infection [Recovered/Resolved]
  - Ascites [Recovered/Resolved]
  - Adrenocortical insufficiency acute [Recovered/Resolved]
  - Acute kidney injury [Recovered/Resolved]
  - Abdominal distension [Recovered/Resolved]
